FAERS Safety Report 14332033 (Version 2)
Quarter: 2018Q2

REPORT INFORMATION
  Report Type: Spontaneous
  Country: US (occurrence: US)
  Receive Date: 20171228
  Receipt Date: 20180629
  Transmission Date: 20180711
  Serious: Yes (Other)
  Sender: FDA-Public Use
  Company Number: US-WEST-WARD PHARMACEUTICALS CORP.-US-H14001-17-05225

PATIENT
  Age: 6 Month
  Sex: Male
  Weight: 6.3 kg

DRUGS (3)
  1. CHLOROTHIAZIDE. [Concomitant]
     Active Substance: CHLOROTHIAZIDE
     Indication: BRONCHOPULMONARY DYSPLASIA
     Route: 065
  2. FUROSEMIDE. [Suspect]
     Active Substance: FUROSEMIDE
     Indication: BRONCHOPULMONARY DYSPLASIA
     Route: 065
  3. PREDNISONE. [Concomitant]
     Active Substance: PREDNISONE
     Indication: BRONCHOPULMONARY DYSPLASIA
     Route: 065

REACTIONS (5)
  - Osteopenia [Recovered/Resolved]
  - Hypocalcaemia [Recovered/Resolved]
  - Hypercalciuria [Recovered/Resolved]
  - Hyperparathyroidism secondary [Recovered/Resolved]
  - Bone disorder [Recovered/Resolved]
